FAERS Safety Report 11195360 (Version 1)
Quarter: 2015Q2

REPORT INFORMATION
  Report Type: Spontaneous
  Country: US (occurrence: None)
  Receive Date: 20150603
  Receipt Date: 20150603
  Transmission Date: 20150821
  Serious: No
  Sender: FDA-Public Use
  Company Number: 2014TASUS000442

PATIENT
  Age: 34 Year
  Sex: Male
  Weight: 86.2 kg

DRUGS (3)
  1. KLONOPIN [Concomitant]
     Active Substance: CLONAZEPAM
  2. NEUROTNIN (GABAPENTIN) [Concomitant]
  3. HETLIOZ [Suspect]
     Active Substance: TASIMELTEON
     Indication: CIRCADIAN RHYTHM SLEEP DISORDER
     Route: 048
     Dates: start: 201406, end: 201406

REACTIONS (9)
  - Hypersomnia [None]
  - Cold sweat [None]
  - Dizziness [None]
  - Poor quality sleep [None]
  - Myalgia [None]
  - Abnormal dreams [None]
  - Inappropriate schedule of drug administration [None]
  - Back pain [None]
  - Headache [None]

NARRATIVE: CASE EVENT DATE: 201406
